FAERS Safety Report 7298804-3 (Version None)
Quarter: 2011Q1

REPORT INFORMATION
  Report Type: 
  Country: None (occurrence: None)
  Receive Date: 20110207
  Receipt Date: 20110121
  Transmission Date: 20110831
  Serious: Yes (Hospitalization, Other)
  Sender: FDA-Public Use
  Company Number: ACO_21571_2011

PATIENT
  Age: 47 Year
  Sex: Female
  Weight: 58 kg

DRUGS (6)
  1. AMPYRA [Suspect]
     Indication: GAIT DISTURBANCE
     Dosage: 10 MG, BID, ORAL
     Route: 048
     Dates: start: 20110101
  2. TYSABRI [Concomitant]
  3. BROMOCRIPTINE 00412202/ (BROMOCRIPTINE MESILATE) [Concomitant]
  4. VITAMIN D [Concomitant]
  5. ZOLOFT [Concomitant]
  6. VITAMIN TAB [Concomitant]

REACTIONS (1)
  - GRAND MAL CONVULSION [None]
